FAERS Safety Report 15091250 (Version 1)
Quarter: 2018Q2

REPORT INFORMATION
  Report Type: Spontaneous
  Country: US (occurrence: US)
  Receive Date: 20180629
  Receipt Date: 20180629
  Transmission Date: 20180711
  Serious: No
  Sender: FDA-Public Use
  Company Number: US-AMGEN-USASP2015072767

PATIENT
  Age: 63 Year
  Sex: Female
  Weight: 58.5 kg

DRUGS (1)
  1. PROLIA [Suspect]
     Active Substance: DENOSUMAB
     Indication: OSTEOPOROSIS
     Dosage: 60 MG, Q6MO
     Route: 065
     Dates: start: 20150313

REACTIONS (27)
  - Dizziness [Recovered/Resolved]
  - Skin injury [Recovered/Resolved]
  - Impaired healing [Recovered/Resolved]
  - Feeling abnormal [Recovered/Resolved]
  - Vision blurred [Recovered/Resolved]
  - Bone pain [Recovered/Resolved]
  - Erythema [Recovered/Resolved]
  - Nausea [Recovered/Resolved]
  - Injection site pruritus [Recovered/Resolved]
  - Visual impairment [Recovered/Resolved]
  - Haematoma [Recovered/Resolved]
  - Dry mouth [Recovered/Resolved]
  - Thirst [Recovered/Resolved]
  - Chapped lips [Recovered/Resolved]
  - Skin irritation [Recovered/Resolved]
  - Lip dry [Recovered/Resolved]
  - Myalgia [Recovered/Resolved]
  - Noninfective gingivitis [Recovered/Resolved]
  - Localised infection [Recovered/Resolved]
  - Peripheral swelling [Recovered/Resolved]
  - Back pain [Recovered/Resolved]
  - Injection site pruritus [Recovered/Resolved]
  - Gingival discomfort [Recovered/Resolved]
  - Lip exfoliation [Recovered/Resolved]
  - Pruritus [Recovered/Resolved]
  - Oropharyngeal discomfort [Recovered/Resolved]
  - Ear lobe infection [Recovered/Resolved]

NARRATIVE: CASE EVENT DATE: 2015
